FAERS Safety Report 5845433-1 (Version None)
Quarter: 2008Q3

REPORT INFORMATION
  Report Type: 
  Country: None (occurrence: None)
  Receive Date: 20080814
  Receipt Date: 20080617
  Transmission Date: 20090109
  Serious: No
  Sender: FDA-Public Use
  Company Number: US-BAYER-200812767BCC

PATIENT
  Age: 69 Year
  Sex: Male
  Weight: 93 kg

DRUGS (7)
  1. ASPIRIN [Suspect]
     Indication: CHEST PAIN
     Dosage: TOTAL DAILY DOSE: 325 MG  UNIT DOSE: 325 MG
     Route: 048
     Dates: start: 20080616
  2. ALEVE (CAPLET) [Suspect]
     Indication: BACK PAIN
     Dosage: TOTAL DAILY DOSE: 440 MG  UNIT DOSE: 220 MG
     Route: 048
     Dates: start: 20080616
  3. TERAZOSIN HCL [Concomitant]
  4. DIOVAN [Concomitant]
  5. COREG [Concomitant]
  6. CADUET [Concomitant]
  7. PREVACID [Concomitant]

REACTIONS (1)
  - DIZZINESS [None]
